FAERS Safety Report 7311936-6 (Version None)
Quarter: 2011Q1

REPORT INFORMATION
  Report Type: 
  Country: None (occurrence: None)
  Receive Date: 20110224
  Receipt Date: 20110214
  Transmission Date: 20110831
  Serious: Yes (Other)
  Sender: FDA-Public Use
  Company Number: PHHY2011BR11887

PATIENT
  Sex: Female
  Weight: 76 kg

DRUGS (8)
  1. RITALIN LA [Suspect]
     Indication: ATTENTION DEFICIT/HYPERACTIVITY DISORDER
     Dosage: 40 MG, QD
     Route: 048
     Dates: start: 20090601, end: 20110101
  2. CARBOLITIUM [Suspect]
     Indication: BIPOLAR DISORDER
  3. SEROQUEL XRO [Suspect]
     Indication: DEPRESSION
     Dosage: 1 DF, BID
  4. RIVOTRIL [Concomitant]
     Indication: DEPRESSION
     Dosage: 1 DF, QD
     Route: 048
  5. PURAN T4 [Concomitant]
     Indication: HYPOTHYROIDISM
     Dosage: 1 DF, QD
     Route: 048
  6. RITALIN LA [Suspect]
     Dosage: 30 MG, QD
     Route: 048
     Dates: start: 20110101
  7. ZYPREXA [Suspect]
     Indication: DEPRESSION
     Dosage: UNK
  8. PRISTIQ [Concomitant]
     Indication: DEPRESSION
     Dosage: 1 DF, QD
     Route: 048

REACTIONS (2)
  - HYPOTHYROIDISM [None]
  - WEIGHT INCREASED [None]
